FAERS Safety Report 13453120 (Version 1)
Quarter: 2017Q2

REPORT INFORMATION
  Report Type: Spontaneous
  Country: SE (occurrence: SE)
  Receive Date: 20170418
  Receipt Date: 20170418
  Transmission Date: 20170830
  Serious: Yes (Other)
  Sender: FDA-Public Use
  Company Number: SE-TEVA-757809ACC

PATIENT
  Age: 83 Year
  Sex: Female

DRUGS (7)
  1. KORTISONACETAT [Concomitant]
  2. IMOVANE [Concomitant]
     Active Substance: ZOPICLONE
  3. TOLTERODINE SANDOZ 4 MG PROLONGED-RELEASE CAPSULE, HARD [Suspect]
     Active Substance: TOLTERODINE
     Indication: MICTURITION URGENCY
     Dosage: 4 MILLIGRAM DAILY;
     Dates: start: 20160921
  4. TROMBYL [Concomitant]
     Active Substance: ASPIRIN
  5. TOLTERODINE ACTAVIS 4 MG PROLONGED-RELEASE CAPSULE, HARD [Suspect]
     Active Substance: TOLTERODINE
     Indication: MICTURITION URGENCY
     Dosage: 4 MILLIGRAM DAILY;
     Dates: start: 20160921
  6. LEVAXIN [Concomitant]
     Active Substance: LEVOTHYROXINE SODIUM
  7. OESTRIOL [Concomitant]

REACTIONS (2)
  - Nightmare [Recovered/Resolved with Sequelae]
  - Delusion [Recovered/Resolved with Sequelae]

NARRATIVE: CASE EVENT DATE: 201701
